FAERS Safety Report 5316943-0 (Version None)
Quarter: 2007Q2

REPORT INFORMATION
  Report Type: 
  Country: None (occurrence: None)
  Receive Date: 20070501
  Receipt Date: 20070501
  Transmission Date: 20071010
  Serious: No
  Sender: FDA-Public Use
  Company Number: None

PATIENT
  Age: 14 Year
  Sex: Female
  Weight: 56.6996 kg

DRUGS (2)
  1. RISPERDAL [Suspect]
     Indication: POST-TRAUMATIC STRESS DISORDER
     Dosage: 1 PILL  NIGHTLY
     Dates: start: 20051001, end: 20060601
  2. ABILIFY [Suspect]
     Dosage: 2 X DAILY
     Dates: start: 20051101, end: 20070322

REACTIONS (7)
  - ACTIVITIES OF DAILY LIVING IMPAIRED [None]
  - BRAIN MASS [None]
  - EATING DISORDER [None]
  - HEADACHE [None]
  - HYPOTENSION [None]
  - SLEEP DISORDER [None]
  - TREMOR [None]
